FAERS Safety Report 23056069 (Version 1)
Quarter: 2023Q4

REPORT INFORMATION
  Report Type: Spontaneous
  Country: None (occurrence: FR)
  Receive Date: 20231011
  Receipt Date: 20231011
  Transmission Date: 20240109
  Serious: Yes (Hospitalization)
  Sender: FDA-Public Use
  Company Number: FR-B.Braun Medical Inc.-2146916

PATIENT
  Age: 42 Year
  Sex: Male
  Weight: 84.6 kg

DRUGS (4)
  1. ACETAMINOPHEN [Suspect]
     Active Substance: ACETAMINOPHEN
     Indication: Pain
     Route: 048
  2. SIMVASTATIN [Suspect]
     Active Substance: SIMVASTATIN
  3. GLICLAZIDE [Suspect]
     Active Substance: GLICLAZIDE
  4. TRAMADOL [Suspect]
     Active Substance: TRAMADOL\TRAMADOL HYDROCHLORIDE

REACTIONS (2)
  - Rhabdomyolysis [None]
  - Hepatitis [None]
